FAERS Safety Report 6015185-3 (Version None)
Quarter: 2008Q4

REPORT INFORMATION
  Report Type: 
  Country: None (occurrence: None)
  Receive Date: 20081222
  Receipt Date: 20081211
  Transmission Date: 20090506
  Serious: Yes (Other)
  Sender: FDA-Public Use
  Company Number: CH-BAXTER-810#3#2004_21904000

PATIENT
  Age: 29 Year
  Sex: Female

DRUGS (7)
  1. ENDOXAN [Suspect]
     Indication: VASCULITIS CEREBRAL
     Route: 042
     Dates: start: 20040108, end: 20040108
  2. DEPAKENE [Suspect]
     Indication: EPILEPSY
     Route: 048
     Dates: start: 20030901
  3. XANAX [Suspect]
     Indication: ANXIETY
     Route: 048
     Dates: start: 20030901
  4. TAVANIC [Concomitant]
     Indication: BRONCHITIS
     Route: 048
     Dates: start: 20040202, end: 20040204
  5. PREDNISONE [Concomitant]
     Indication: ASTHMA
     Route: 048
  6. OMEPRAZOLE [Concomitant]
     Indication: PROPHYLAXIS
     Route: 048
  7. SEREVENT [Concomitant]
     Indication: ASTHMA
     Route: 055

REACTIONS (1)
  - DRUG EXPOSURE DURING PREGNANCY [None]
